FAERS Safety Report 17117211 (Version 2)
Quarter: 2019Q4

REPORT INFORMATION
  Report Type: Report from Study
  Country: FR (occurrence: FR)
  Receive Date: 20191205
  Receipt Date: 20191220
  Transmission Date: 20200122
  Serious: Yes (Death)
  Sender: FDA-Public Use
  Company Number: FR-PFIZER INC-2019523950

PATIENT
  Age: 59 Year
  Sex: Male

DRUGS (11)
  1. PERFALGAN [Suspect]
     Active Substance: ACETAMINOPHEN
     Indication: MYASTHENIC SYNDROME
     Dosage: 1 G, 3X/DAY
     Route: 065
     Dates: start: 20130627
  2. SOLUPRED [PREDNISOLONE] [Concomitant]
     Active Substance: PREDNISOLONE
     Indication: HODGKIN^S DISEASE
     Dosage: 40 MG, 2X/DAY
     Route: 048
     Dates: start: 20130628
  3. AMLODIPINE [Concomitant]
     Active Substance: AMLODIPINE BESYLATE
     Indication: HYPERTENSION
     Dosage: 5 MG, 1X/DAY
     Route: 048
     Dates: start: 20130627
  4. FIRDAPSE [Suspect]
     Active Substance: AMIFAMPRIDINE
     Dosage: 10 MG, 4X/DAY
     Route: 048
     Dates: start: 20130701
  5. KARDEGIC [Concomitant]
     Active Substance: ASPIRIN DL-LYSINE
     Indication: CORONARY ARTERY DISEASE
     Dosage: 75 MG, 1X/DAY
     Route: 048
     Dates: start: 20130627
  6. ZOPHREN [ONDANSETRON HYDROCHLORIDE] [Concomitant]
     Active Substance: ONDANSETRON
     Indication: HODGKIN^S DISEASE
     Dosage: 8 MG, 2X/DAY
     Route: 048
     Dates: start: 20130627
  7. CONTRAMAL [Suspect]
     Active Substance: TRAMADOL HYDROCHLORIDE
     Indication: MYASTHENIC SYNDROME
     Dosage: 50 MG, WHEN NEEDED
     Route: 065
     Dates: start: 20130627
  8. LYRICA [Suspect]
     Active Substance: PREGABALIN
     Indication: MYASTHENIC SYNDROME
     Dosage: 25 MG, 2X/DAY
     Route: 065
     Dates: start: 20130627
  9. MESTINON [Suspect]
     Active Substance: PYRIDOSTIGMINE BROMIDE
     Indication: MYASTHENIC SYNDROME
     Dosage: 60 MG, 2X/DAY
     Route: 065
     Dates: start: 20130625, end: 20130701
  10. FIRDAPSE [Suspect]
     Active Substance: AMIFAMPRIDINE
     Indication: MYASTHENIC SYNDROME
     Dosage: 10 MG, 3X/DAY
     Route: 048
     Dates: start: 20130625, end: 20130630
  11. EUPANTOL [Concomitant]
     Active Substance: PANTOPRAZOLE SODIUM
     Indication: HYPERCHOLESTEROLAEMIA
     Dosage: 40 MG, 1X/DAY
     Route: 048
     Dates: start: 20130627

REACTIONS (1)
  - Cardio-respiratory arrest [Fatal]

NARRATIVE: CASE EVENT DATE: 20130705
